FAERS Safety Report 6052014-6 (Version None)
Quarter: 2009Q1

REPORT INFORMATION
  Report Type: 
  Country: None (occurrence: None)
  Receive Date: 20090126
  Receipt Date: 20090121
  Transmission Date: 20090719
  Serious: Yes (Death)
  Sender: FDA-Public Use
  Company Number: US-KINGPHARMUSA00001-K200900065

PATIENT

DRUGS (1)
  1. ALTACE [Suspect]
     Dosage: UNK
     Route: 048

REACTIONS (4)
  - ABDOMINAL DISTENSION [None]
  - DEATH [None]
  - DYSPNOEA [None]
  - OEDEMA PERIPHERAL [None]
